FAERS Safety Report 15934054 (Version 1)
Quarter: 2019Q1

REPORT INFORMATION
  Report Type: Spontaneous
  Country: GB (occurrence: GB)
  Receive Date: 20190207
  Receipt Date: 20190207
  Transmission Date: 20190417
  Serious: Yes (Other)
  Sender: FDA-Public Use
  Company Number: GB-TEVA-2019-GB-1008199

PATIENT
  Age: 10 Year
  Sex: Female
  Weight: 7 kg

DRUGS (2)
  1. TRIMETHOPRIM. [Suspect]
     Active Substance: TRIMETHOPRIM
     Dosage: 20 ML DAILY; 50MG/5ML
     Route: 048
     Dates: start: 20190114, end: 20190115
  2. CEFALEXIN [Concomitant]
     Active Substance: CEPHALEXIN
     Dosage: 15 ML DAILY; FOR THREE DAYS.
     Dates: start: 20190115

REACTIONS (1)
  - Dermatitis allergic [Recovering/Resolving]

NARRATIVE: CASE EVENT DATE: 20190114
